FAERS Safety Report 6252964-1 (Version None)
Quarter: 2009Q3

REPORT INFORMATION
  Report Type: 
  Country: None (occurrence: None)
  Receive Date: 20090701
  Receipt Date: 20090625
  Transmission Date: 20100115
  Serious: Yes (Hospitalization)
  Sender: FDA-Public Use
  Company Number: B0580209A

PATIENT
  Sex: Female
  Weight: 62 kg

DRUGS (4)
  1. TOPOTECAN [Suspect]
     Dosage: 1.26MG THREE TIMES PER WEEK
     Route: 042
     Dates: start: 20090324
  2. CARBOPLATIN [Suspect]
     Dosage: 485MG THREE TIMES PER WEEK
     Route: 042
     Dates: start: 20090326
  3. NULYTELY [Concomitant]
     Indication: CONSTIPATION
     Route: 048
     Dates: start: 20090406
  4. MOTILIUM [Concomitant]
     Indication: CONSTIPATION
     Dosage: 10MG PER DAY
     Route: 048
     Dates: start: 20090406

REACTIONS (5)
  - ABDOMINAL PAIN [None]
  - COLONIC OBSTRUCTION [None]
  - NEUTROPENIA [None]
  - PLATELET COUNT DECREASED [None]
  - WHITE BLOOD CELL DISORDER [None]
